FAERS Safety Report 5924231-4 (Version None)
Quarter: 2008Q4

REPORT INFORMATION
  Report Type: 
  Country: None (occurrence: None)
  Receive Date: 20081020
  Receipt Date: 20081009
  Transmission Date: 20090506
  Serious: Yes (Hospitalization, Other)
  Sender: FDA-Public Use
  Company Number: US-ELI_LILLY_AND_COMPANY-US200810002226

PATIENT
  Age: 72 Year
  Sex: Female

DRUGS (4)
  1. FORTEO [Suspect]
     Dosage: UNK, UNK
     Dates: start: 20071001
  2. FORTEO [Suspect]
     Dates: end: 20081006
  3. LORAZEPAM [Concomitant]
     Dosage: 4.5 MG, DAILY (1/D)
  4. LORAZEPAM [Concomitant]
     Dosage: 0.5 D/F, EACH EVENING

REACTIONS (21)
  - ANXIETY [None]
  - BODY TEMPERATURE DECREASED [None]
  - CARDIAC FAILURE CONGESTIVE [None]
  - DIARRHOEA [None]
  - DIZZINESS [None]
  - EAR DISORDER [None]
  - ERYTHEMA [None]
  - EYE DISORDER [None]
  - FEELING COLD [None]
  - FOOT FRACTURE [None]
  - GAIT DISTURBANCE [None]
  - HEADACHE [None]
  - HEPATITIS VIRAL [None]
  - MUSCLE SPASMS [None]
  - NAUSEA [None]
  - PANCREATITIS VIRAL [None]
  - PRURITUS [None]
  - RHEUMATOID ARTHRITIS [None]
  - SKIN DISORDER [None]
  - VEIN DISORDER [None]
  - VOMITING [None]
